FAERS Safety Report 4342766-5 (Version None)
Quarter: 2004Q2

REPORT INFORMATION
  Report Type: 
  Country: None (occurrence: None)
  Receive Date: 20040415
  Receipt Date: 19990623
  Transmission Date: 20050107
  Serious: Yes (Death, Life-Threatening)
  Sender: FDA-Public Use
  Company Number: WAES 99070573

PATIENT
  Age: 12 Day
  Sex: Female

DRUGS (7)
  1. INDOCIN I.V. [Suspect]
     Indication: PATENT DUCTUS ARTERIOSUS
     Dosage: 400 MICROGM DAILY INJ
     Dates: start: 19990521, end: 19990521
  2. AMPICILLIN [Concomitant]
  3. CEFOTAXIME SODIUM [Concomitant]
  4. DIGOXIN [Concomitant]
  5. DOBUTAMINE HCI [Concomitant]
  6. DOPAMINE HCI [Concomitant]
  7. GANTAMICINSO4 [Concomitant]

REACTIONS (10)
  - BLOOD CREATININE INCREASED [None]
  - BLOOD UREA INCREASED [None]
  - CARDIAC FAILURE CONGESTIVE [None]
  - HYPOGLYCAEMIA NEONATAL [None]
  - NEONATAL CARDIAC FAILURE [None]
  - NEONATAL DISORDER [None]
  - OLIGURIA [None]
  - PLATELET COUNT DECREASED [None]
  - PULMONARY HAEMORRHAGE [None]
  - UPPER GASTROINTESTINAL HAEMORRHAGE [None]
